FAERS Safety Report 6454164-9 (Version None)
Quarter: 2009Q4

REPORT INFORMATION
  Report Type: 
  Country: None (occurrence: None)
  Receive Date: 20091124
  Receipt Date: 20091123
  Transmission Date: 20100525
  Serious: Yes (Hospitalization)
  Sender: FDA-Public Use
  Company Number: GXKR2009DE12671

PATIENT
  Age: 70 Year
  Sex: Male

DRUGS (13)
  1. ALLOPURINOL (NGX) [Suspect]
     Dosage: 100 MG, QD
     Route: 048
     Dates: end: 20090519
  2. AKINETON [Suspect]
     Dosage: 4 MG, QD
     Route: 048
  3. ERGENYL ^LABAZ^ [Suspect]
     Dosage: 300 MG, QD
     Route: 048
     Dates: start: 20090526
  4. ERGENYL ^LABAZ^ [Suspect]
     Dosage: 450 MG, QD
     Dates: start: 20090527, end: 20090528
  5. ERGENYL ^LABAZ^ [Suspect]
     Dosage: 600 MG, QD
     Route: 048
     Dates: start: 20090529, end: 20090603
  6. ERGENYL ^LABAZ^ [Suspect]
     Dosage: 900 MG, QD
     Route: 048
     Dates: start: 20090604, end: 20090605
  7. EUNERPAN [Suspect]
     Dosage: 100 MG, QD
     Route: 048
     Dates: start: 20090525, end: 20090604
  8. EUNERPAN [Suspect]
     Dosage: 50 MG, QD
     Route: 048
     Dates: start: 20090525, end: 20090604
  9. EUNERPAN [Suspect]
     Dosage: 25 MG, QD
     Route: 048
     Dates: start: 20090605, end: 20090609
  10. HALDOL [Suspect]
     Route: 030
  11. QUILONIUM-R [Suspect]
     Dosage: 900 MG, QD
     Route: 048
     Dates: end: 20090519
  12. ENALAPRIL (NGX) [Interacting]
     Dosage: UNK
     Route: 048
     Dates: end: 20090519
  13. TORASEMIDE [Concomitant]
     Dosage: 20 MG, QD
     Route: 048

REACTIONS (1)
  - ATRIOVENTRICULAR BLOCK [None]
